FAERS Safety Report 8516871-3 (Version None)
Quarter: 2012Q3

REPORT INFORMATION
  Report Type: 
  Country: None (occurrence: None)
  Receive Date: 20120706
  Receipt Date: 20120618
  Transmission Date: 20120928
  Serious: No
  Sender: FDA-Public Use
  Company Number: JPI-P-021413

PATIENT
  Age: 42 Year
  Sex: Male
  Weight: 81.6475 kg

DRUGS (6)
  1. NUVIGIL [Concomitant]
  2. VIAGRA [Concomitant]
  3. XYREM [Suspect]
     Indication: CATAPLEXY
     Dosage: SEE IMAGE
     Route: 048
     Dates: start: 20120530, end: 20120531
  4. XYREM [Suspect]
     Indication: CATAPLEXY
     Dosage: SEE IMAGE
     Route: 048
     Dates: start: 20120509, end: 20120501
  5. XYREM [Suspect]
     Indication: CATAPLEXY
     Dosage: SEE IMAGE
     Route: 048
     Dates: start: 20120601
  6. XYREM [Suspect]
     Indication: CATAPLEXY
     Dosage: SEE IMAGE
     Route: 048
     Dates: start: 20120501, end: 20120529

REACTIONS (12)
  - CONVULSION [None]
  - PARAESTHESIA [None]
  - BACK PAIN [None]
  - VOMITING [None]
  - SNORING [None]
  - BALANCE DISORDER [None]
  - FALL [None]
  - HYPERSOMNIA [None]
  - FATIGUE [None]
  - JOINT INJURY [None]
  - PAIN [None]
  - CONDITION AGGRAVATED [None]
